FAERS Safety Report 9812802 (Version 1)
Quarter: 2014Q1

REPORT INFORMATION
  Report Type: Spontaneous
  Country: US (occurrence: None)
  Receive Date: 20140109
  Receipt Date: 20140109
  Transmission Date: 20141002
  Serious: Yes (Hospitalization)
  Sender: FDA-Public Use
  Company Number: None

PATIENT
  Age: 33 Year
  Sex: Female
  Weight: 71.67 kg

DRUGS (1)
  1. AZITHROMYCINE TEVA 250 MG TABLET [Suspect]
     Indication: EAR INFECTION
     Dosage: ZPACK, DECREASING
     Route: 048
     Dates: start: 20131025, end: 20131027

REACTIONS (5)
  - Dyspnoea [None]
  - Dizziness [None]
  - Syncope [None]
  - Disorientation [None]
  - Heart rate increased [None]
